FAERS Safety Report 15973881 (Version 1)
Quarter: 2019Q1

REPORT INFORMATION
  Report Type: Spontaneous
  Country: NL (occurrence: NL)
  Receive Date: 20190217
  Receipt Date: 20190217
  Transmission Date: 20190418
  Serious: Yes (Death)
  Sender: FDA-Public Use
  Company Number: PHHY2019NL026128

PATIENT
  Age: 73 Year
  Sex: Male

DRUGS (3)
  1. CAPECITABINE. [Suspect]
     Active Substance: CAPECITABINE
     Indication: PANCREATIC NEUROENDOCRINE TUMOUR METASTATIC
     Dosage: 600 MG/M2, BID (DAY 1-14) WAS GIVEN EVERY 4 WEEKS
     Route: 065
  2. TEMOZOLOMIDE. [Suspect]
     Active Substance: TEMOZOLOMIDE
     Indication: PANCREATIC NEUROENDOCRINE TUMOUR METASTATIC
     Dosage: 150 MG/M2, QD (DAY 10-14) WAS GIVEN EVERY 4 WEEKS
     Route: 065
  3. EVEROLIMUS. [Suspect]
     Active Substance: EVEROLIMUS
     Indication: PANCREATIC NEUROENDOCRINE TUMOUR
     Dosage: 10 MG, QD
     Route: 065

REACTIONS (8)
  - Cerebellar ataxia [Fatal]
  - Urinary incontinence [Fatal]
  - Paradoxical drug reaction [Fatal]
  - Metastases to meninges [Fatal]
  - Neurological decompensation [Fatal]
  - Anal incontinence [Fatal]
  - Paraparesis [Fatal]
  - Product use in unapproved indication [Unknown]
